FAERS Safety Report 10237737 (Version 1)
Quarter: 2014Q2

REPORT INFORMATION
  Report Type: Spontaneous
  Country: JP (occurrence: JP)
  Receive Date: 20140616
  Receipt Date: 20140616
  Transmission Date: 20141212
  Serious: Yes (Hospitalization)
  Sender: FDA-Public Use
  Company Number: JP-BRISTOL-MYERS SQUIBB COMPANY-20982856

PATIENT
  Age: 66 Year
  Sex: Male

DRUGS (1)
  1. BYDUREON [Suspect]
     Indication: TYPE 2 DIABETES MELLITUS
     Dosage: INJECTION:DOSE UNKNOWN
     Route: 058
     Dates: start: 201402

REACTIONS (1)
  - Ileus [Unknown]
